FAERS Safety Report 4592769-0 (Version None)
Quarter: 2005Q1

REPORT INFORMATION
  Report Type: 
  Country: None (occurrence: None)
  Receive Date: 20050228
  Receipt Date: 20050202
  Transmission Date: 20050727
  Serious: Yes (Death)
  Sender: FDA-Public Use
  Company Number: PHEH2005US01568

PATIENT
  Age: 14 Year
  Sex: Male
  Weight: 68 kg

DRUGS (2)
  1. TRILEPTAL [Suspect]
     Indication: COMPLEX PARTIAL SEIZURES
     Dosage: 300 MG, QD
     Route: 048
     Dates: start: 20030226
  2. TRILEPTAL [Suspect]
     Dosage: 600 MG, BID
     Dates: end: 20031017

REACTIONS (4)
  - COMPLETED SUICIDE [None]
  - CONFUSIONAL STATE [None]
  - DRUG LEVEL DECREASED [None]
  - PSYCHOTIC DISORDER [None]
